FAERS Safety Report 9284012 (Version 1)
Quarter: 2013Q2

REPORT INFORMATION
  Report Type: Report from Study
  Country: US (occurrence: US)
  Receive Date: 20130510
  Receipt Date: 20130510
  Transmission Date: 20140414
  Serious: Yes (Hospitalization, Other)
  Sender: FDA-Public Use
  Company Number: US-ACTELION-A-NJ2013-81556

PATIENT
  Age: 34 Year
  Sex: Female

DRUGS (7)
  1. VENTAVIS [Suspect]
     Indication: PULMONARY ARTERIAL HYPERTENSION
     Dosage: 5 MCG, UNK. 6-9 TIMES /DAY
     Route: 055
     Dates: start: 20120901
  2. ADCIRCA [Concomitant]
     Dosage: 20 MG, BID
     Route: 048
     Dates: start: 20120711
  3. LETAIRIS [Concomitant]
     Dosage: 10 MG, UNK
     Route: 048
  4. FERROUS SULFATE [Concomitant]
     Dosage: 325 MG, TID
     Route: 048
     Dates: start: 20100923
  5. LOPRESSOR [Concomitant]
     Dosage: 25 MG, UNK
     Route: 048
     Dates: start: 20120711
  6. ZANTAC [Concomitant]
     Dosage: 150 MG, BID
     Route: 048
  7. COUMADIN [Concomitant]
     Dosage: 7.5 MG, BID

REACTIONS (6)
  - Pulmonary arterial hypertension [Recovered/Resolved]
  - Right ventricular dysfunction [Recovered/Resolved]
  - Disease progression [Recovered/Resolved]
  - Electrocardiogram QT prolonged [Unknown]
  - Drug ineffective [Recovered/Resolved]
  - Cough [Recovered/Resolved]
